FAERS Safety Report 19698560 (Version 3)
Quarter: 2022Q1

REPORT INFORMATION
  Report Type: Spontaneous
  Country: GB (occurrence: GB)
  Receive Date: 20210813
  Receipt Date: 20220218
  Transmission Date: 20220423
  Serious: Yes (Other)
  Sender: FDA-Public Use
  Company Number: GB-BAXTER-2020BAX017657

PATIENT
  Age: 51 Year
  Sex: Male
  Weight: 53 kg

DRUGS (210)
  1. FERROUS SULFATE [Suspect]
     Active Substance: FERROUS SULFATE
     Indication: Product used for unknown indication
     Dosage: 1 DOSAGE FORM, ONCE A DAY
     Route: 065
  2. CALCIUM CARBONATE\CHOLECALCIFEROL [Suspect]
     Active Substance: CALCIUM CARBONATE\CHOLECALCIFEROL
     Indication: Mineral supplementation
     Dosage: 2 DOSAGE FORM, ONCE A DAY
     Route: 065
  3. CALCIUM CARBONATE\CHOLECALCIFEROL [Suspect]
     Active Substance: CALCIUM CARBONATE\CHOLECALCIFEROL
     Indication: Mineral supplementation
     Dosage: 1 DOSAGE FORM, ONCE A DAY
     Route: 065
  4. CALCIUM CARBONATE\CHOLECALCIFEROL [Suspect]
     Active Substance: CALCIUM CARBONATE\CHOLECALCIFEROL
     Dosage: 1 DOSAGE FORM
     Route: 065
  5. CALCIUM CARBONATE\CHOLECALCIFEROL [Suspect]
     Active Substance: CALCIUM CARBONATE\CHOLECALCIFEROL
     Dosage: UNK UNK, QD
     Route: 065
  6. CALCIUM CARBONATE\CHOLECALCIFEROL [Suspect]
     Active Substance: CALCIUM CARBONATE\CHOLECALCIFEROL
     Dosage: UNK UNK, QD
     Route: 065
  7. CALCIUM CARBONATE\CHOLECALCIFEROL [Suspect]
     Active Substance: CALCIUM CARBONATE\CHOLECALCIFEROL
     Dosage: UNK UNK, QD
     Route: 065
  8. CALCIUM CARBONATE\CHOLECALCIFEROL [Suspect]
     Active Substance: CALCIUM CARBONATE\CHOLECALCIFEROL
     Dosage: UNK UNK, QD
     Route: 065
  9. CALCIUM CARBONATE\CHOLECALCIFEROL [Suspect]
     Active Substance: CALCIUM CARBONATE\CHOLECALCIFEROL
     Dosage: 2 DF, QD (TABLET), TABLET 2UNK
     Route: 065
  10. CALCIUM CARBONATE\CHOLECALCIFEROL [Suspect]
     Active Substance: CALCIUM CARBONATE\CHOLECALCIFEROL
     Dosage: DOSE 1 (UNSPECIFIED UNIT)
     Route: 065
  11. CALCIUM CARBONATE\CHOLECALCIFEROL [Suspect]
     Active Substance: CALCIUM CARBONATE\CHOLECALCIFEROL
     Dosage: 1 DOSAGE FORM, ONCE A DAY
     Route: 065
  12. CALCIUM CARBONATE\CHOLECALCIFEROL [Suspect]
     Active Substance: CALCIUM CARBONATE\CHOLECALCIFEROL
     Dosage: 1 DOSAGE FORM, ONCE A DAY
     Route: 065
  13. CALCIUM CARBONATE\CHOLECALCIFEROL [Suspect]
     Active Substance: CALCIUM CARBONATE\CHOLECALCIFEROL
     Dosage: UNK UNK, QD
     Route: 065
  14. CALCIUM CARBONATE\CHOLECALCIFEROL [Suspect]
     Active Substance: CALCIUM CARBONATE\CHOLECALCIFEROL
     Dosage: 1 DOSAGE FORM
     Route: 065
  15. CALCIUM CARBONATE\CHOLECALCIFEROL [Suspect]
     Active Substance: CALCIUM CARBONATE\CHOLECALCIFEROL
     Dosage: 2 DOSAGE FORM, DAILY
     Route: 065
  16. CALCIUM CARBONATE\CHOLECALCIFEROL [Suspect]
     Active Substance: CALCIUM CARBONATE\CHOLECALCIFEROL
     Dosage: 1 DOSAGE FORM
     Route: 065
  17. CALCIUM CARBONATE\CHOLECALCIFEROL [Suspect]
     Active Substance: CALCIUM CARBONATE\CHOLECALCIFEROL
     Dosage: 1 UNK
     Route: 065
  18. APREPITANT [Suspect]
     Active Substance: APREPITANT
     Indication: Supportive care
     Dosage: 125 MILLIGRAM, D1) SINGLE (D1 (125 MG)/125 MG, 1X; IN TOTAL)
     Route: 065
     Dates: start: 20200826
  19. APREPITANT [Suspect]
     Active Substance: APREPITANT
     Indication: Mineral supplementation
     Dosage: UNK, ONCE A DAY
     Route: 065
  20. APREPITANT [Suspect]
     Active Substance: APREPITANT
     Dosage: 125 MG (125 MG (D1) SINGLE (D1 (125 MG)/125 MG, 1X IN TOATAL)
     Route: 065
     Dates: start: 20200826
  21. APREPITANT [Suspect]
     Active Substance: APREPITANT
     Dosage: 125 MG, (D1 (125 MG)/125 MG, 1X; IN TOTAL/D1)
     Route: 065
     Dates: start: 20200825
  22. APREPITANT [Suspect]
     Active Substance: APREPITANT
     Dosage: 80 MILLIGRAM, DAILY
     Route: 065
     Dates: start: 20200825
  23. APREPITANT [Suspect]
     Active Substance: APREPITANT
     Dosage: 80 MILLIGRAM
     Route: 065
     Dates: start: 20200826
  24. APREPITANT [Suspect]
     Active Substance: APREPITANT
     Dosage: 125 MG, (D1 (125 MG)/125 MG, 1X; IN TOTAL/D1)
     Route: 065
     Dates: start: 20200825
  25. APREPITANT [Suspect]
     Active Substance: APREPITANT
     Dosage: 125 MG
     Route: 065
     Dates: start: 20200825
  26. APREPITANT [Suspect]
     Active Substance: APREPITANT
     Dosage: 80 MILLIGRAM
     Route: 065
     Dates: start: 20200826
  27. APREPITANT [Suspect]
     Active Substance: APREPITANT
     Dosage: 1 DOSE (UNIT SPECIFIED)/1 DOSAGE FORMS,1 D
     Route: 065
  28. APREPITANT [Suspect]
     Active Substance: APREPITANT
     Dosage: UNK UNK, QD
     Route: 065
  29. APREPITANT [Suspect]
     Active Substance: APREPITANT
     Dosage: 1 DOSAGE FORM
     Route: 065
  30. APREPITANT [Suspect]
     Active Substance: APREPITANT
     Dosage: 80 MILLIGRAM
     Route: 065
     Dates: start: 20200826
  31. APREPITANT [Suspect]
     Active Substance: APREPITANT
     Dosage: 80 MILLIGRAM
     Route: 065
     Dates: start: 20200826
  32. APREPITANT [Suspect]
     Active Substance: APREPITANT
     Dosage: 125 MG
     Route: 065
     Dates: start: 20200825
  33. APREPITANT [Suspect]
     Active Substance: APREPITANT
     Dosage: 125 MG
     Route: 065
     Dates: start: 20200825
  34. APREPITANT [Suspect]
     Active Substance: APREPITANT
     Dosage: UNK UNK, QD
     Route: 065
  35. APREPITANT [Suspect]
     Active Substance: APREPITANT
     Dosage: D1 (125 MG)/125 MG, 1X; IN TOTAL
     Route: 065
     Dates: start: 20200825
  36. APREPITANT [Suspect]
     Active Substance: APREPITANT
     Dosage: UNK
     Route: 065
  37. CALCIUM [Suspect]
     Active Substance: CALCIUM
     Indication: Mineral supplementation
     Dosage: 1 DOSAGE FORM, ONCE A DAY
     Route: 065
  38. CALCIUM [Suspect]
     Active Substance: CALCIUM
     Dosage: 8 DOSAGE FORM, ONCE A DAY
     Route: 065
  39. CALCIUM [Suspect]
     Active Substance: CALCIUM
     Dosage: 2 DOSAGE FORM, ONCE A DAY(2 DF, QD (TABLET), TABLET 2UNK)
     Route: 065
  40. CALCIUM [Suspect]
     Active Substance: CALCIUM
     Dosage: UNK UNK, ONCE A DAY
     Route: 065
  41. CALCIUM [Suspect]
     Active Substance: CALCIUM
     Dosage: 1 DOSAGE FORM, ONCE A DAY
     Route: 065
  42. CALCIUM\CHOLECALCIFEROL [Suspect]
     Active Substance: CALCIUM\CHOLECALCIFEROL
     Indication: Product used for unknown indication
     Dosage: 8 DOSAGE FORM, ONCE A DAY, 8 (DF),QD
     Route: 065
  43. CALCIUM\CHOLECALCIFEROL [Suspect]
     Active Substance: CALCIUM\CHOLECALCIFEROL
     Dosage: 2 DOSAGE FORM, ONCE A DAY(2 DF, QD (2 DF, QD (TABLET), TABLET 2UNK) )
     Route: 065
  44. CISPLATIN [Suspect]
     Active Substance: CISPLATIN
     Indication: Germ cell neoplasm
     Dosage: 79 MG,IN 1 LITER (NOT SPECIFIED) (79 MG)
     Route: 065
     Dates: start: 20200825
  45. CHOLECALCIFEROL [Suspect]
     Active Substance: CHOLECALCIFEROL
     Indication: Mineral supplementation
     Dosage: 2 DOSAGE FORM, ONCE A DAY
     Route: 065
  46. CHOLECALCIFEROL [Suspect]
     Active Substance: CHOLECALCIFEROL
     Dosage: 1 DOSAGE FORM
     Route: 065
  47. CHOLECALCIFEROL [Suspect]
     Active Substance: CHOLECALCIFEROL
     Dosage: UNK UNK, ONCE A DAY
     Route: 065
  48. CHOLECALCIFEROL [Suspect]
     Active Substance: CHOLECALCIFEROL
     Dosage: 1 (UNSPECIFIED UNIT)
     Route: 065
  49. CHOLECALCIFEROL [Suspect]
     Active Substance: CHOLECALCIFEROL
     Dosage: 8 DOSAGE FORM, ONCE A DAY
     Route: 065
  50. CHOLECALCIFEROL [Suspect]
     Active Substance: CHOLECALCIFEROL
     Dosage: UNK DF, QD
     Route: 065
  51. CHOLECALCIFEROL [Suspect]
     Active Substance: CHOLECALCIFEROL
     Dosage: 2 DOSAGE FORM, ONCE A DAY(2 DF, QD)
     Route: 065
  52. CHOLECALCIFEROL [Suspect]
     Active Substance: CHOLECALCIFEROL
     Dosage: TABLET(1D) / UNK, QD (TABLET(1D))
     Route: 065
  53. CHOLECALCIFEROL [Suspect]
     Active Substance: CHOLECALCIFEROL
     Dosage: 1 DOSAGE FORM, ONCE A DAY
     Route: 065
  54. DEXAMETHASONE [Suspect]
     Active Substance: DEXAMETHASONE
     Indication: Supportive care
     Dosage: 8 MG, QD(8 MG, 1X/DAY )
     Route: 048
     Dates: start: 20200825
  55. DEXAMETHASONE [Suspect]
     Active Substance: DEXAMETHASONE
     Dosage: 30 MILLIGRAM, DAILY
     Route: 048
     Dates: start: 20200825
  56. DEXAMETHASONE [Suspect]
     Active Substance: DEXAMETHASONE
     Dosage: 8 MG, QD(8 MG, 1X/DAY )
     Route: 048
     Dates: start: 20200825
  57. DEXAMETHASONE [Suspect]
     Active Substance: DEXAMETHASONE
     Dosage: 8 MG, QD (8 MG, 1X/DAY ) (8 MG,1 D)
     Route: 048
     Dates: start: 20200825
  58. DOMPERIDONE [Suspect]
     Active Substance: DOMPERIDONE
     Indication: Supportive care
     Dosage: 8 MILLIGRAM, ONCE A DAY
     Route: 048
     Dates: start: 20200825
  59. DOMPERIDONE [Suspect]
     Active Substance: DOMPERIDONE
     Dosage: 30 MILLIGRAM, ONCE A DAY
     Route: 048
     Dates: start: 20200825
  60. DOMPERIDONE [Suspect]
     Active Substance: DOMPERIDONE
     Dosage: PRN (30 MG,1 D)30 MILLIGRAM, QD
     Route: 048
     Dates: start: 20200825
  61. DOMPERIDONE [Suspect]
     Active Substance: DOMPERIDONE
     Dosage: 30 MG, QD(30 MG, 1 D (QD), AS NECESSARY
     Route: 048
     Dates: start: 20200825
  62. ASCORBIC ACID [Suspect]
     Active Substance: ASCORBIC ACID
     Indication: Product used for unknown indication
     Dosage: 1 DOSAGE FORM, ONCE A DAY
     Route: 065
  63. BIOTIN [Suspect]
     Active Substance: BIOTIN
     Indication: Product used for unknown indication
     Dosage: 3 DOSAGE FORM, TABLETS 3UNK
     Route: 065
  64. CALCIUM CARBONATE [Suspect]
     Active Substance: CALCIUM CARBONATE
     Indication: Nutritional supplementation
     Dosage: UNK, ONCE A DAY, TABLETS 3UNK
     Route: 065
  65. CALCIUM CARBONATE [Suspect]
     Active Substance: CALCIUM CARBONATE
     Dosage: UNK UNK, QD
     Route: 065
  66. CALCIUM CARBONATE [Suspect]
     Active Substance: CALCIUM CARBONATE
     Dosage: UNK UNK, QD
     Route: 065
  67. CALCIUM CARBONATE [Suspect]
     Active Substance: CALCIUM CARBONATE
     Dosage: 1 DOSAGE FORM, DAILY
     Route: 065
  68. CALCIUM CARBONATE [Suspect]
     Active Substance: CALCIUM CARBONATE
     Dosage: 1 DOSAGE FORM, DAILY
     Route: 065
  69. CALCIUM CARBONATE [Suspect]
     Active Substance: CALCIUM CARBONATE
     Dosage: 1 DOSAGE FORM, DAILY
     Route: 065
  70. CALCIUM CARBONATE [Suspect]
     Active Substance: CALCIUM CARBONATE
     Dosage: 1 DOSAGE FORM, DAILY
     Route: 065
  71. CALCIUM CARBONATE [Suspect]
     Active Substance: CALCIUM CARBONATE
     Dosage: 8 DOSAGE FORM, DAILY
     Route: 065
  72. CALCIUM CARBONATE [Suspect]
     Active Substance: CALCIUM CARBONATE
     Dosage: 1 DOSAGE FORM, DAILY
     Route: 065
  73. CALCIUM CARBONATE [Suspect]
     Active Substance: CALCIUM CARBONATE
     Dosage: UNK UNK, QD
     Route: 065
  74. CALCIUM CARBONATE [Suspect]
     Active Substance: CALCIUM CARBONATE
     Dosage: 1 DOSAGE FORM, DAILY
     Route: 065
  75. CALCIUM CARBONATE [Suspect]
     Active Substance: CALCIUM CARBONATE
     Dosage: UNK UNK, QD
     Route: 065
  76. CALCIUM CARBONATE [Suspect]
     Active Substance: CALCIUM CARBONATE
     Dosage: 1 DOSAGE FORM, DAILY
     Route: 065
  77. CALCIUM CARBONATE [Suspect]
     Active Substance: CALCIUM CARBONATE
     Dosage: 8 DOSAGE FORM, DAILY
     Route: 065
  78. CALCIUM CARBONATE [Suspect]
     Active Substance: CALCIUM CARBONATE
     Dosage: UNK UNK, QD
     Route: 065
  79. CALCIUM CARBONATE [Suspect]
     Active Substance: CALCIUM CARBONATE
     Dosage: 1 DOSAGE FORM, DAILY
     Route: 065
  80. CALCIUM CARBONATE [Suspect]
     Active Substance: CALCIUM CARBONATE
     Dosage: 8 DOSAGE FORM, DAILY
     Route: 065
  81. CALCIUM CARBONATE [Suspect]
     Active Substance: CALCIUM CARBONATE
     Dosage: 8 DOSAGE FORM, DAILY
     Route: 065
  82. CALCIUM CARBONATE [Suspect]
     Active Substance: CALCIUM CARBONATE
     Dosage: 2 DF, QD, ((2 DF, QD (TABLET), TABLET 2UNK))
     Route: 065
  83. CALCIUM CARBONATE [Suspect]
     Active Substance: CALCIUM CARBONATE
     Dosage: UNK UNK, QD
     Route: 065
  84. CALCIUM CARBONATE [Suspect]
     Active Substance: CALCIUM CARBONATE
     Dosage: 1 DOSAGE FORM, DAILY
     Route: 065
  85. CALCIUM CARBONATE [Suspect]
     Active Substance: CALCIUM CARBONATE
     Dosage: UNK UNK, QD
     Route: 065
  86. CALCIUM CARBONATE [Suspect]
     Active Substance: CALCIUM CARBONATE
     Dosage: 1 DOSAGE FORM, DAILY
     Route: 065
  87. CALCIUM CARBONATE [Suspect]
     Active Substance: CALCIUM CARBONATE
     Dosage: UNK UNK, QD
     Route: 065
  88. CALCIUM CARBONATE [Suspect]
     Active Substance: CALCIUM CARBONATE
     Dosage: UNK UNK, QD
     Route: 065
  89. CALCIUM CARBONATE [Suspect]
     Active Substance: CALCIUM CARBONATE
     Dosage: UNK UNK, QD
     Route: 065
  90. CALCIUM CARBONATE [Suspect]
     Active Substance: CALCIUM CARBONATE
     Dosage: 8 DOSAGE FORM, DAILY
     Route: 065
  91. CALCIUM CARBONATE [Suspect]
     Active Substance: CALCIUM CARBONATE
     Dosage: 8 DOSAGE FORM, DAILY
     Route: 065
  92. CALCIUM CARBONATE [Suspect]
     Active Substance: CALCIUM CARBONATE
     Dosage: UNK UNK, QD
     Route: 065
  93. CALCIUM CARBONATE [Suspect]
     Active Substance: CALCIUM CARBONATE
     Dosage: 1 DOSAGE FORM, DAILY
     Route: 065
  94. CALCIUM CARBONATE [Suspect]
     Active Substance: CALCIUM CARBONATE
     Dosage: 1 DOSAGE FORM, DAILY
     Route: 065
  95. CALCIUM CARBONATE [Suspect]
     Active Substance: CALCIUM CARBONATE
     Dosage: 2 DOSAGE FORM, DAILY
     Route: 065
  96. CALCIUM CARBONATE [Suspect]
     Active Substance: CALCIUM CARBONATE
     Dosage: 2 DOSAGE FORM, DAILY
     Route: 065
  97. THIAMINE HYDROCHLORIDE [Suspect]
     Active Substance: THIAMINE HYDROCHLORIDE
     Indication: Product used for unknown indication
     Dosage: 1 DOSAGE FORM, ONCE A DAY
     Route: 065
  98. FOLIC ACID [Suspect]
     Active Substance: FOLIC ACID
     Indication: Product used for unknown indication
     Dosage: 1 DOSAGE FORM, ONCE A DAY
     Route: 065
  99. RIBOFLAVIN [Suspect]
     Active Substance: RIBOFLAVIN
     Indication: Product used for unknown indication
     Dosage: 1 DOSAGE FORM, ONCE A DAY
     Route: 065
  100. MAGNESIUM CHLORIDE [Suspect]
     Active Substance: MAGNESIUM CHLORIDE
     Indication: Product used for unknown indication
     Dosage: 1 DOSAGE FORM, ONCE A DAY
     Route: 065
  101. SODIUM POLYMETAPHOSPHATE [Suspect]
     Active Substance: SODIUM POLYMETAPHOSPHATE
     Indication: Product used for unknown indication
     Dosage: 3 DOSAGE FORM, TABLETS 3UNK
     Route: 065
  102. POTASSIUM IODIDE [Suspect]
     Active Substance: POTASSIUM IODIDE
     Indication: Product used for unknown indication
     Dosage: 1 DOSAGE FORM, ONCE A DAY
     Route: 065
  103. POTASSIUM CHLORIDE [Suspect]
     Active Substance: POTASSIUM CHLORIDE
     Indication: Product used for unknown indication
     Dosage: 1 DOSAGE FORM, ONCE A DAY
     Route: 065
  104. CUPRIC SULFATE ANHYDROUS [Suspect]
     Active Substance: CUPRIC SULFATE ANHYDROUS
     Indication: Product used for unknown indication
     Dosage: 1 DOSAGE FORM, ONCE A DAY
     Route: 065
  105. CYANOCOBALAMIN [Suspect]
     Active Substance: CYANOCOBALAMIN
     Indication: Product used for unknown indication
     Dosage: 1 DOSAGE FORM, ONCE A DAY
     Route: 065
  106. PYRIDOXINE HYDROCHLORIDE [Suspect]
     Active Substance: PYRIDOXINE HYDROCHLORIDE
     Indication: Product used for unknown indication
     Dosage: 1 DOSAGE FORM, ONCE A DAY
     Route: 065
  107. LINOLEIC ACID [Suspect]
     Active Substance: LINOLEIC ACID
     Indication: Product used for unknown indication
     Dosage: 3 DOSAGE FORM, TABLETS 3UNK
     Route: 065
  108. MANGANESE CHLORIDE [Suspect]
     Active Substance: MANGANESE CHLORIDE
     Indication: Product used for unknown indication
     Dosage: 1 DOSAGE FORM, ONCE A DAY
     Route: 065
  109. CARBOHYDRATES [Suspect]
     Active Substance: CARBOHYDRATES
     Indication: Product used for unknown indication
     Dosage: 1 DOSAGE FORM, ONCE A DAY
     Route: 065
  110. POTASSIUM CITRATE [Suspect]
     Active Substance: POTASSIUM CITRATE
     Indication: Product used for unknown indication
     Dosage: 1 DOSAGE FORM, ONCE A DAY
     Route: 065
  111. .ALPHA.-TOCOPHEROL ACETATE [Suspect]
     Active Substance: .ALPHA.-TOCOPHEROL ACETATE
     Indication: Product used for unknown indication
     Dosage: 1 DOSAGE FORM, ONCE A DAY
     Route: 065
  112. PHYTONADIONE [Suspect]
     Active Substance: PHYTONADIONE
     Indication: Product used for unknown indication
     Dosage: 1 DOSAGE FORM, ONCE A DAY
     Route: 065
  113. LIPOSYN (R) INTRAVENOUS FAT EMULSION [Suspect]
     Active Substance: LIPOSYN (R) INTRAVENOUS FAT EMULSION
     Indication: Product used for unknown indication
     Dosage: 1 DOSAGE FORM, ONCE A DAY
     Route: 065
  114. CALCIUM PANTOTHENATE [Suspect]
     Active Substance: CALCIUM PANTOTHENATE
     Indication: Product used for unknown indication
     Dosage: 1 DOSAGE FORM, ONCE A DAY
     Route: 065
  115. ZINC SULFATE [Suspect]
     Active Substance: ZINC SULFATE
     Indication: Product used for unknown indication
     Dosage: 1 DOSAGE FORM, ONCE A DAY
     Route: 065
  116. VITAMIN A PALMITATE [Suspect]
     Active Substance: VITAMIN A PALMITATE
     Indication: Product used for unknown indication
     Dosage: 1 DOSAGE FORM, ONCE A DAY
     Route: 065
  117. ERGOCALCIFEROL [Suspect]
     Active Substance: ERGOCALCIFEROL
     Indication: Product used for unknown indication
     Dosage: 1 DOSAGE FORM, ONCE A DAY
     Route: 065
  118. PROTEIN [Suspect]
     Active Substance: PROTEIN
     Indication: Product used for unknown indication
     Dosage: 1 DOSAGE FORM, ONCE A DAY
     Route: 065
  119. NICOTINAMIDE [Suspect]
     Active Substance: NIACINAMIDE
     Indication: Product used for unknown indication
     Dosage: 1 DOSAGE FORM, ONCE A DAY
     Route: 065
  120. ETOPOSIDE [Suspect]
     Active Substance: ETOPOSIDE
     Indication: Germ cell neoplasm
     Dosage: 360 MILLIGRAM;, IN 1 LITER 2 BAGS (360 MG)
     Route: 065
     Dates: start: 20200825, end: 20200825
  121. ETOPOSIDE [Suspect]
     Active Substance: ETOPOSIDE
     Dosage: 360 MILLIGRAM
     Route: 065
     Dates: start: 202007
  122. ETOPOSIDE [Suspect]
     Active Substance: ETOPOSIDE
     Dosage: UNK
     Route: 065
  123. ETOPOSIDE [Suspect]
     Active Substance: ETOPOSIDE
     Dosage: UNK
     Route: 065
     Dates: start: 202007
  124. ETOPOSIDE [Suspect]
     Active Substance: ETOPOSIDE
     Dosage: 360 MG IN 1 LITER 2 BAGS
     Route: 065
     Dates: start: 20200825
  125. ETOPOSIDE [Suspect]
     Active Substance: ETOPOSIDE
     Dosage: 360 MILLIGRAM
     Route: 065
     Dates: start: 202007
  126. ETOPOSIDE [Suspect]
     Active Substance: ETOPOSIDE
     Dosage: UNK
     Route: 065
     Dates: start: 202007
  127. ETOPOSIDE [Suspect]
     Active Substance: ETOPOSIDE
     Dosage: UNK
     Route: 065
     Dates: start: 202007
  128. ETOPOSIDE [Suspect]
     Active Substance: ETOPOSIDE
     Dosage: 360 MILLIGRAM;, IN 1 LITER 2 BAGS (360 MG)
     Route: 065
     Dates: start: 20200825, end: 20200825
  129. ETOPOSIDE [Suspect]
     Active Substance: ETOPOSIDE
     Dosage: 360 MILLIGRAM
     Route: 065
     Dates: start: 202007
  130. NAUZELIN [Suspect]
     Active Substance: DOMPERIDONE
     Indication: Supportive care
     Dosage: 30 MILLIGRAM, ONCE A DAY
     Route: 048
     Dates: start: 20200825
  131. NAUZELIN [Suspect]
     Active Substance: DOMPERIDONE
     Dosage: 30 MG, 1D (QD) (AS NECESSARY)
     Route: 048
     Dates: start: 20200825
  132. NAUZELIN [Suspect]
     Active Substance: DOMPERIDONE
     Dosage: 30 MG, QD (PRN (30 MG,1 D))
     Route: 048
     Dates: start: 20200825
  133. NAUZELIN [Suspect]
     Active Substance: DOMPERIDONE
     Dosage: 8 MILLIGRAM, ONCE A DAY
     Route: 048
     Dates: start: 20200825
  134. NAUZELIN [Suspect]
     Active Substance: DOMPERIDONE
     Route: 048
     Dates: start: 20200825
  135. NAUZELIN [Suspect]
     Active Substance: DOMPERIDONE
     Dosage: 16 MG, QD(16 MG (FOR 3 DAYS (16 MG,1 D))
     Route: 048
     Dates: start: 20200825
  136. NAUZELIN [Suspect]
     Active Substance: DOMPERIDONE
     Dosage: 30 MG, 1D (QD) (AS NECESSARY)
     Route: 048
     Dates: start: 20200825
  137. NICOTINE [Suspect]
     Active Substance: NICOTINE
     Indication: Drug therapy
     Dosage: 21 MILLIGRAM, ONCE A DAY (PATCH, EVERY 24 HOURS)
     Route: 065
  138. NICOTINE [Suspect]
     Active Substance: NICOTINE
     Dosage: 21 MG, QD, PATCH, EVERY 24 HOURS (21 MG,1 D)
     Route: 065
  139. NICOTINE [Suspect]
     Active Substance: NICOTINE
     Dosage: 21 MILLIGRAM, ONCE A DAY (PATCH, EVERY 24 HOURS
     Route: 065
  140. NICOTINE [Suspect]
     Active Substance: NICOTINE
     Dosage: 21 MG, QD, PATCH, EVERY 24 HOURS (21 MG,1 D)
     Route: 065
  141. NICOTINE [Suspect]
     Active Substance: NICOTINE
     Dosage: 21 MG, QD, PATCH, EVERY 24 HOURS (21 MG,1 D)
     Route: 065
  142. ONDANSETRON [Suspect]
     Active Substance: ONDANSETRON
     Indication: Supportive care
     Dosage: 16 MG, QD (FOR 3 DAYS (ORODISPERSIBLE FILM)
     Route: 048
     Dates: start: 20200825
  143. PHENYLBUTAZONE [Suspect]
     Active Substance: PHENYLBUTAZONE
     Indication: Hypovitaminosis
     Dosage: 300 MILLIGRAM, ONCE A DAY,QD
     Route: 065
  144. PHENYLBUTAZONE [Suspect]
     Active Substance: PHENYLBUTAZONE
     Dosage: 300 MG, QD
     Route: 065
  145. PHENYLBUTAZONE [Suspect]
     Active Substance: PHENYLBUTAZONE
     Dosage: 300 MILLIGRAM, ONCE A DAY,QD
     Route: 065
  146. PHENYLBUTAZONE [Suspect]
     Active Substance: PHENYLBUTAZONE
     Dosage: 300 MILLIGRAM, ONCE A DAY,QD
     Route: 065
  147. PHENYLBUTAZONE [Suspect]
     Active Substance: PHENYLBUTAZONE
     Dosage: 300 MG, QD
     Route: 065
  148. PHENYLBUTAZONE [Suspect]
     Active Substance: PHENYLBUTAZONE
     Dosage: 300 MG, QD
     Route: 065
  149. PROPYPHENAZONE [Suspect]
     Active Substance: PROPYPHENAZONE
     Indication: Hypovitaminosis
     Dosage: 300 MILLIGRAM, ONCE A DAY, QD
     Route: 065
  150. PROPYPHENAZONE [Suspect]
     Active Substance: PROPYPHENAZONE
     Dosage: 1 DOSAGE FORM
     Route: 065
  151. PROPYPHENAZONE [Suspect]
     Active Substance: PROPYPHENAZONE
     Dosage: 300 MILLIGRAM, DAILY
     Route: 065
  152. PROPYPHENAZONE [Suspect]
     Active Substance: PROPYPHENAZONE
     Dosage: 300 MILLIGRAM, DAILY
     Route: 065
  153. SODIUM CHLORIDE [Suspect]
     Active Substance: SODIUM CHLORIDE
     Indication: Medication dilution
     Dosage: 0.9 PERCENT
     Route: 065
     Dates: start: 20200825, end: 20200825
  154. SODIUM CHLORIDE [Suspect]
     Active Substance: SODIUM CHLORIDE
     Dosage: 0.9 %
     Route: 065
     Dates: start: 20200825, end: 20200825
  155. SODIUM CHLORIDE [Suspect]
     Active Substance: SODIUM CHLORIDE
     Dosage: 0.9 PERCENT
     Route: 065
     Dates: start: 20200825, end: 20200825
  156. SODIUM CHLORIDE [Suspect]
     Active Substance: SODIUM CHLORIDE
     Dosage: 0.9 PERCENT
     Route: 042
     Dates: start: 20200825, end: 20200825
  157. SODIUM CHLORIDE [Suspect]
     Active Substance: SODIUM CHLORIDE
     Dosage: 0.9 %
     Route: 065
     Dates: start: 20200825, end: 20200825
  158. SODIUM CHLORIDE [Suspect]
     Active Substance: SODIUM CHLORIDE
     Dosage: 0.9 %
     Route: 065
     Dates: start: 20200825, end: 20200825
  159. SODIUM CHLORIDE [Suspect]
     Active Substance: SODIUM CHLORIDE
     Dosage: 0.9 %
     Route: 065
     Dates: start: 20200825, end: 20200825
  160. SODIUM CHLORIDE [Suspect]
     Active Substance: SODIUM CHLORIDE
     Dosage: 0.9 %
     Route: 065
     Dates: start: 20200825, end: 20200825
  161. SODIUM CHLORIDE [Suspect]
     Active Substance: SODIUM CHLORIDE
     Dosage: PKGID=20E08T3D, PKGID=2324409.1/
     Route: 065
     Dates: start: 20200825, end: 20200825
  162. THIAMINE [Suspect]
     Active Substance: THIAMINE
     Indication: Hypovitaminosis
     Dosage: UNK
     Route: 065
  163. THIAMINE [Suspect]
     Active Substance: THIAMINE
     Dosage: 300 MILLIGRAM, ONCE A DAY
     Route: 065
  164. THIAMINE [Suspect]
     Active Substance: THIAMINE
     Dosage: UNK UNK, ONCE A DAY
     Route: 065
  165. THIAMINE [Suspect]
     Active Substance: THIAMINE
     Dosage: 1 DOSAGE FORM
     Route: 065
  166. THIAMINE [Suspect]
     Active Substance: THIAMINE
     Dosage: 300 MILLIGRAM, ONCE A DAY
     Route: 065
  167. THIAMINE [Suspect]
     Active Substance: THIAMINE
     Dosage: UNK
     Route: 065
  168. THIAMINE [Suspect]
     Active Substance: THIAMINE
     Dosage: 300 MILLIGRAM, ONCE A DAY
     Route: 065
  169. THIAMINE [Suspect]
     Active Substance: THIAMINE
     Dosage: 1 DOSAGE FORM
     Route: 065
  170. THIAMINE [Suspect]
     Active Substance: THIAMINE
     Dosage: 300 MILLIGRAM, ONCE A DAY
     Route: 065
  171. THIAMINE [Suspect]
     Active Substance: THIAMINE
     Dosage: 300 MILLIGRAM, ONCE A DAY
     Route: 065
  172. THIAMINE MONONITRATE [Suspect]
     Active Substance: THIAMINE MONONITRATE
     Indication: Hypovitaminosis
     Dosage: 300 MILLIGRAM, ONCE A DAY
     Route: 065
  173. THIAMINE HYDROCHLORIDE [Suspect]
     Active Substance: THIAMINE HYDROCHLORIDE
     Indication: Nutritional supplementation
     Dosage: 1 DOSAGE FORM
     Route: 065
  174. THIAMINE HYDROCHLORIDE [Suspect]
     Active Substance: THIAMINE HYDROCHLORIDE
     Dosage: 300 MILLIGRAM, DAILY
     Route: 065
  175. THIAMINE HYDROCHLORIDE [Suspect]
     Active Substance: THIAMINE HYDROCHLORIDE
     Dosage: 1 DOSAGE FORM
     Route: 065
  176. THIAMINE MONONITRATE [Suspect]
     Active Substance: THIAMINE MONONITRATE
     Indication: Hypovitaminosis
     Dosage: 300 MILLIGRAM, ONCE A DAY
     Route: 065
  177. THIAMINE MONONITRATE [Suspect]
     Active Substance: THIAMINE MONONITRATE
     Dosage: 300 MILLIGRAM, DAILY
     Route: 065
  178. THIAMINE MONONITRATE [Suspect]
     Active Substance: THIAMINE MONONITRATE
     Dosage: 300 MG; TABLET
     Route: 065
  179. THIAMINE MONONITRATE [Suspect]
     Active Substance: THIAMINE MONONITRATE
     Dosage: 1 DOSAGE FORM, 1 DF; TABLET
     Route: 065
  180. THIAMINE MONONITRATE [Suspect]
     Active Substance: THIAMINE MONONITRATE
     Dosage: 300 MILLIGRAM, DAILY
     Route: 065
  181. THIAMINE MONONITRATE [Suspect]
     Active Substance: THIAMINE MONONITRATE
     Dosage: 300 MILLIGRAM, TABLET
     Route: 065
  182. TRIBASIC CALCIUM PHOSPHATE [Suspect]
     Active Substance: TRIBASIC CALCIUM PHOSPHATE
     Indication: Product used for unknown indication
  183. FERROUS SULFATE [Suspect]
     Active Substance: FERROUS SULFATE
     Indication: Product used for unknown indication
  184. CALCIUM PHOSPHATE [Suspect]
     Active Substance: CALCIUM PHOSPHATE
     Indication: Product used for unknown indication
     Dosage: DOSE: 1 (UNSPECIFIED UNIT)
     Route: 065
  185. CALCIUM PHOSPHATE [Suspect]
     Active Substance: CALCIUM PHOSPHATE
     Dosage: 2 DOSAGE FORM
     Route: 065
  186. CALCIUM PHOSPHATE [Suspect]
     Active Substance: CALCIUM PHOSPHATE
     Dosage: DOSE: 1 (UNSPECIFIED UNIT)
     Route: 065
  187. CALCIUM PHOSPHATE [Suspect]
     Active Substance: CALCIUM PHOSPHATE
     Dosage: 8 DOSAGE FORM, DAILY
     Route: 065
  188. CALCIUM PHOSPHATE [Suspect]
     Active Substance: CALCIUM PHOSPHATE
     Dosage: UNK, DAILY
     Route: 065
  189. CALCIUM PHOSPHATE [Suspect]
     Active Substance: CALCIUM PHOSPHATE
     Dosage: UNK UNK, QD
     Route: 065
  190. CALCIUM PHOSPHATE [Suspect]
     Active Substance: CALCIUM PHOSPHATE
     Dosage: 1 DOSAGE FORM, DAILY
     Route: 065
  191. CHOLECALCIFEROL [Suspect]
     Active Substance: CHOLECALCIFEROL
     Indication: Product used for unknown indication
     Dosage: 1 DOSAGE FORM, DAILY
     Route: 065
  192. CHOLECALCIFEROL [Suspect]
     Active Substance: CHOLECALCIFEROL
     Dosage: 1 DOSAGE FORM, DAILY
     Route: 065
  193. CHOLECALCIFEROL [Suspect]
     Active Substance: CHOLECALCIFEROL
     Dosage: UNK UNK, QD
     Route: 065
  194. CHOLECALCIFEROL [Suspect]
     Active Substance: CHOLECALCIFEROL
     Dosage: 8 DOSAGE FORM, DAILY
     Route: 065
  195. CHOLECALCIFEROL [Suspect]
     Active Substance: CHOLECALCIFEROL
     Dosage: UNK
     Route: 065
  196. CHOLECALCIFEROL [Suspect]
     Active Substance: CHOLECALCIFEROL
     Dosage: UNK
     Route: 065
  197. CHOLECALCIFEROL [Suspect]
     Active Substance: CHOLECALCIFEROL
     Dosage: UNK
     Route: 065
  198. CHOLECALCIFEROL [Suspect]
     Active Substance: CHOLECALCIFEROL
     Dosage: TABLET(1D) / UNK, QD (TABLET(1D)
     Route: 065
  199. CHOLECALCIFEROL [Suspect]
     Active Substance: CHOLECALCIFEROL
     Dosage: 1 (UNSPECIFIED UNIT)
     Route: 065
  200. CHOLECALCIFEROL [Suspect]
     Active Substance: CHOLECALCIFEROL
     Dosage: UNK
     Route: 065
  201. CHOLECALCIFEROL [Suspect]
     Active Substance: CHOLECALCIFEROL
     Dosage: 8 DOSAGE FORM, DAILY
     Route: 065
  202. CHOLECALCIFEROL [Suspect]
     Active Substance: CHOLECALCIFEROL
     Dosage: UNK
     Route: 065
  203. CHOLECALCIFEROL [Suspect]
     Active Substance: CHOLECALCIFEROL
     Dosage: TABLET(1D) / UNK, QD (TABLET(1D)
     Route: 065
  204. CHOLECALCIFEROL [Suspect]
     Active Substance: CHOLECALCIFEROL
     Dosage: UNK
     Route: 065
  205. CHOLECALCIFEROL [Suspect]
     Active Substance: CHOLECALCIFEROL
     Dosage: TABLET(1D) / UNK, QD (TABLET(1D)
     Route: 065
  206. CHOLECALCIFEROL [Suspect]
     Active Substance: CHOLECALCIFEROL
     Dosage: 2 DOSAGE FORM, DAILY
     Route: 065
  207. DOMPERIDONE MALEATE [Suspect]
     Active Substance: DOMPERIDONE MALEATE
     Indication: Product used for unknown indication
     Dosage: UNK UNK, QD
     Route: 048
     Dates: start: 20200825
  208. DOMPERIDONE MALEATE [Suspect]
     Active Substance: DOMPERIDONE MALEATE
     Dosage: 8 MG, QD
     Route: 048
     Dates: start: 20200825
  209. SODIUM [Suspect]
     Active Substance: SODIUM
     Indication: Product used for unknown indication
  210. ZINC SULFATE [Suspect]
     Active Substance: ZINC SULFATE
     Indication: Product used for unknown indication

REACTIONS (9)
  - Hypersensitivity [Recovered/Resolved]
  - Eructation [Unknown]
  - Abdominal distension [Unknown]
  - Oropharyngeal discomfort [Unknown]
  - Barrett^s oesophagus [Unknown]
  - Vitamin B12 deficiency [Unknown]
  - Dyspepsia [Unknown]
  - Neck pain [Unknown]
  - Regurgitation [Unknown]

NARRATIVE: CASE EVENT DATE: 20200825
